FAERS Safety Report 18489931 (Version 1)
Quarter: 2020Q4

REPORT INFORMATION
  Report Type: Spontaneous
  Country: US (occurrence: US)
  Receive Date: 20201111
  Receipt Date: 20201111
  Transmission Date: 20210114
  Serious: Yes (Death)
  Sender: FDA-Public Use
  Company Number: None

PATIENT
  Age: 84 Year
  Sex: Male

DRUGS (13)
  1. MIRTAZAPINE. [Concomitant]
     Active Substance: MIRTAZAPINE
  2. MYCOPHENOLATE [Suspect]
     Active Substance: MYCOPHENOLIC ACID
     Indication: SYSTEMIC LUPUS ERYTHEMATOSUS
     Route: 048
     Dates: start: 20180331, end: 20201106
  3. ALLOPURINOL. [Concomitant]
     Active Substance: ALLOPURINOL
  4. NITROFURANTIN [Concomitant]
     Active Substance: NITROFURANTOIN
  5. PRAVASTATIN. [Concomitant]
     Active Substance: PRAVASTATIN
  6. HYDROXYCHLORINE [Concomitant]
  7. BUMETANIDE. [Concomitant]
     Active Substance: BUMETANIDE
  8. DOXAZOSIN [Concomitant]
     Active Substance: DOXAZOSIN MESYLATE
  9. PREDNISONE. [Concomitant]
     Active Substance: PREDNISONE
  10. FINASTERIDE. [Concomitant]
     Active Substance: FINASTERIDE
  11. ELIQUIS [Concomitant]
     Active Substance: APIXABAN
  12. PANTPRAZOLE [Concomitant]
  13. TRIAMCINOLONE [Concomitant]
     Active Substance: TRIAMCINOLONE

REACTIONS (1)
  - Condition aggravated [None]

NARRATIVE: CASE EVENT DATE: 20201106
